FAERS Safety Report 24658137 (Version 1)
Quarter: 2024Q4

REPORT INFORMATION
  Report Type: Spontaneous
  Country: US (occurrence: US)
  Receive Date: 20241125
  Receipt Date: 20241125
  Transmission Date: 20250115
  Serious: Yes (Hospitalization, Other)
  Sender: LUPIN
  Company Number: US-LUPIN PHARMACEUTICALS INC.-2024-11338

PATIENT
  Age: 55 Year
  Sex: Male

DRUGS (3)
  1. POLYETHYLENE GLYCOL [Suspect]
     Active Substance: POLYETHYLENE GLYCOL
     Indication: Bowel preparation
     Dosage: 4 LITER, RECEIVED IN THE EVENING
     Route: 065
  2. POLYETHYLENE GLYCOL [Suspect]
     Active Substance: POLYETHYLENE GLYCOL
     Dosage: 4 LITER, RECEIVED SPLIT-DOSE REGIMEN OF POLYETHYLENE-GLYCOL 4L; 2L IN THE EVENING AND POLYETHYLENE-G
     Route: 065
  3. POLYETHYLENE GLYCOL [Suspect]
     Active Substance: POLYETHYLENE GLYCOL
     Dosage: 6 LITER
     Route: 065

REACTIONS (3)
  - Pulmonary oedema [Recovering/Resolving]
  - Acute respiratory failure [Recovering/Resolving]
  - Hypervolaemia [Recovering/Resolving]
